FAERS Safety Report 5898604-2 (Version None)
Quarter: 2008Q3

REPORT INFORMATION
  Report Type: 
  Country: None (occurrence: None)
  Receive Date: 20080925
  Receipt Date: 20080222
  Transmission Date: 20090109
  Serious: No
  Sender: FDA-Public Use
  Company Number: A0711363A

PATIENT
  Age: 55 Year
  Sex: Male

DRUGS (4)
  1. WELLBUTRIN XL [Suspect]
     Indication: SEASONAL AFFECTIVE DISORDER
     Dosage: 150MG PER DAY
     Route: 048
     Dates: start: 20080117, end: 20080213
  2. WELLBUTRIN XL [Suspect]
     Dosage: 300MG PER DAY
     Route: 048
     Dates: start: 20080214
  3. LISINOPRIL [Concomitant]
  4. OMEPRAZOLE [Concomitant]

REACTIONS (2)
  - PROSTATITIS [None]
  - URINARY RETENTION [None]
